FAERS Safety Report 7289636-0 (Version None)
Quarter: 2011Q1

REPORT INFORMATION
  Report Type: 
  Country: None (occurrence: None)
  Receive Date: 20110214
  Receipt Date: 20110202
  Transmission Date: 20110831
  Serious: Yes (Hospitalization)
  Sender: FDA-Public Use
  Company Number: US-BIOGENIDEC-2011BI004038

PATIENT
  Sex: Male

DRUGS (2)
  1. TYSABRI [Suspect]
     Indication: MULTIPLE SCLEROSIS
     Route: 042
     Dates: start: 20090506, end: 20100401
  2. TYSABRI [Suspect]
     Route: 042
     Dates: start: 20061020, end: 20080819

REACTIONS (2)
  - SOMNOLENCE [None]
  - NERVOUS SYSTEM DISORDER [None]
